FAERS Safety Report 4881935-2 (Version None)
Quarter: 2006Q1

REPORT INFORMATION
  Report Type: 
  Country: None (occurrence: None)
  Receive Date: 20060112
  Receipt Date: 20061229
  Transmission Date: 20060701
  Serious: Yes (Hospitalization)
  Sender: FDA-Public Use
  Company Number: 6019546

PATIENT
  Age: 61 Year
  Sex: Male

DRUGS (3)
  1. LODOZ 5MG/6.25MG (TABLET) (HYDROCHLOROTHIAZIDE, BISOPROLOL FUMARATE) [Suspect]
     Dosage: 1 DOSAGE, ORAL
     Route: 048
     Dates: start: 20050830, end: 20050930
  2. ALLOPURINOL (200 MG) ALLOPURINOL) [Suspect]
     Dosage: 200 MG (200 MG, 1 IN 1 D), ORAL
     Route: 048
     Dates: start: 20050607, end: 20050930
  3. RHINOFEBRAL (1 DOSAGE FORMS)  ASCORBIC ACID, PARACETAMOL, CHLORPHENAMI [Suspect]
     Dosage: 1 DOSAGE FORMS (1 DOSAGE FORMS, 1 IN 1 D), ORAL
     Route: 048
     Dates: start: 20050929, end: 20050929

REACTIONS (4)
  - APHTHOUS STOMATITIS [None]
  - DYSPHAGIA [None]
  - PHARYNGOLARYNGEAL PAIN [None]
  - TONGUE OEDEMA [None]
